FAERS Safety Report 4854709-6 (Version None)
Quarter: 2005Q4

REPORT INFORMATION
  Report Type: 
  Country: None (occurrence: None)
  Receive Date: 20051214
  Receipt Date: 20051214
  Transmission Date: 20060501
  Serious: Yes (Life-Threatening, Hospitalization)
  Sender: FDA-Public Use
  Company Number: None

PATIENT
  Sex: Female
  Weight: 60.782 kg

DRUGS (1)
  1. VALIUM [Suspect]
     Indication: STATUS EPILEPTICUS
     Dosage: IV
     Route: 042
     Dates: start: 19800101

REACTIONS (2)
  - COMA [None]
  - HEART RATE DECREASED [None]
